FAERS Safety Report 13687668 (Version 1)
Quarter: 2017Q2

REPORT INFORMATION
  Report Type: Spontaneous
  Country: GB (occurrence: GB)
  Receive Date: 20170625
  Receipt Date: 20170625
  Transmission Date: 20170830
  Serious: Yes (Hospitalization)
  Sender: FDA-Public Use
  Company Number: GB-TEVA-779419ACC

PATIENT
  Age: 71 Year
  Sex: Female

DRUGS (11)
  1. BENDROFLUMETHIAZIDE [Concomitant]
     Active Substance: BENDROFLUMETHIAZIDE
  2. BETAMETHASONE VALERATE. [Concomitant]
     Active Substance: BETAMETHASONE VALERATE
  3. PERINDOPRIL [Concomitant]
     Active Substance: PERINDOPRIL
  4. ACITRETIN. [Suspect]
     Active Substance: ACITRETIN
     Indication: PSORIASIS
     Dosage: 25 MILLIGRAM DAILY;
     Route: 048
     Dates: start: 20170111, end: 20170123
  5. CALCIPOTRIOL [Concomitant]
     Active Substance: CALCIPOTRIENE
  6. ADCAL [Concomitant]
     Active Substance: CALCIUM CARBONATE
  7. ROPINIROLE. [Concomitant]
     Active Substance: ROPINIROLE
  8. CETIRIZINE HYDROCHLORIDE. [Concomitant]
     Active Substance: CETIRIZINE HYDROCHLORIDE
  9. BETAMETHASONE DIPROPIONATE. [Concomitant]
     Active Substance: BETAMETHASONE DIPROPIONATE
  10. CAPASAL [Concomitant]
  11. CLOPIDOGREL [Concomitant]
     Active Substance: CLOPIDOGREL BISULFATE

REACTIONS (20)
  - Blister [Recovering/Resolving]
  - Paraesthesia [Unknown]
  - Peripheral swelling [Recovering/Resolving]
  - Head discomfort [Recovering/Resolving]
  - Photopsia [Recovering/Resolving]
  - Eye irritation [Recovering/Resolving]
  - Pain [Unknown]
  - Arthralgia [Recovering/Resolving]
  - Asthenia [Unknown]
  - Erythema [Recovering/Resolving]
  - Abdominal pain [Recovering/Resolving]
  - Dry mouth [Recovering/Resolving]
  - Hair colour changes [Recovering/Resolving]
  - Skin exfoliation [Recovering/Resolving]
  - Chapped lips [Recovering/Resolving]
  - Noninfective gingivitis [Recovering/Resolving]
  - Thirst [Recovering/Resolving]
  - Back pain [Recovering/Resolving]
  - Blood pressure increased [Recovering/Resolving]
  - Hair disorder [Recovering/Resolving]

NARRATIVE: CASE EVENT DATE: 2017
